FAERS Safety Report 6754454-6 (Version None)
Quarter: 2010Q2

REPORT INFORMATION
  Report Type: 
  Country: None (occurrence: None)
  Receive Date: 20100603
  Receipt Date: 20100525
  Transmission Date: 20101027
  Serious: Yes (Other)
  Sender: FDA-Public Use
  Company Number: PHHY2010US34118

PATIENT
  Sex: Female

DRUGS (1)
  1. EXTAVIA [Suspect]
     Indication: MULTIPLE SCLEROSIS
     Dosage: 0.25 MG, QOD
     Route: 058

REACTIONS (5)
  - ABDOMINAL PAIN [None]
  - CROHN'S DISEASE [None]
  - MEGACOLON [None]
  - RECTAL HAEMORRHAGE [None]
  - VOMITING [None]
